FAERS Safety Report 18617610 (Version 1)
Quarter: 2020Q4

REPORT INFORMATION
  Report Type: Spontaneous
  Country: US (occurrence: US)
  Receive Date: 20201215
  Receipt Date: 20201215
  Transmission Date: 20210114
  Serious: Yes (Disabling, Other)
  Sender: FDA-Public Use
  Company Number: None

PATIENT
  Sex: Male
  Weight: 94.5 kg

DRUGS (17)
  1. METOPROLOL. [Concomitant]
     Active Substance: METOPROLOL
  2. POTASSIUM CITRATE. [Concomitant]
     Active Substance: POTASSIUM CITRATE
  3. OXYGEN THERAPY [Concomitant]
     Active Substance: OXYGEN
  4. VENLAFAXINE [Concomitant]
     Active Substance: VENLAFAXINE HYDROCHLORIDE
  5. DAILY ASPIRIN [Concomitant]
  6. UBIQUINOL [Concomitant]
     Active Substance: UBIQUINOL
  7. VITAMIN D [Concomitant]
     Active Substance: VITAMIN D NOS
  8. DAILY MULTIVITAMIN [Concomitant]
     Active Substance: VITAMINS
  9. TAMULOSIN HCL [Concomitant]
  10. LISINOPRIL. [Concomitant]
     Active Substance: LISINOPRIL
  11. TEA [Concomitant]
     Active Substance: TEA LEAF
  12. ANDROGEL [Suspect]
     Active Substance: TESTOSTERONE
     Indication: HYPOGONADISM
     Dosage: ?          QUANTITY:1 5G GEL TOPICALLY;?
     Route: 061
     Dates: start: 20120401, end: 20160101
  13. ONDANSETRON [Concomitant]
     Active Substance: ONDANSETRON
  14. CLONAZEPAM. [Concomitant]
     Active Substance: CLONAZEPAM
  15. ATORVASTATIN [Concomitant]
     Active Substance: ATORVASTATIN
  16. COMBIVENT RESPIMAT [Concomitant]
     Active Substance: ALBUTEROL SULFATE\IPRATROPIUM BROMIDE
  17. ZINC SULFATE. [Concomitant]
     Active Substance: ZINC SULFATE

REACTIONS (2)
  - Prostatic specific antigen increased [None]
  - Prostatomegaly [None]
